FAERS Safety Report 25516912 (Version 3)
Quarter: 2025Q3

REPORT INFORMATION
  Report Type: Report from Study
  Country: US (occurrence: US)
  Receive Date: 20250704
  Receipt Date: 20250922
  Transmission Date: 20251021
  Serious: Yes (Other)
  Sender: DECIPHERA PHARMACEUTICALS
  Company Number: US-DECIPHERA PHARMACEUTICALS LLC-2025US000810

PATIENT
  Age: 88 Year
  Sex: Male

DRUGS (2)
  1. QINLOCK [Suspect]
     Active Substance: RIPRETINIB
     Indication: Malignant melanoma
     Dosage: 150 MILLIGRAM, QD
     Route: 048
     Dates: start: 20241125
  2. QINLOCK [Suspect]
     Active Substance: RIPRETINIB
     Dosage: 150 MILLIGRAM, QD (3 TABLETS ONCE DAILY)
     Route: 048

REACTIONS (4)
  - Malignant melanoma [Unknown]
  - Apathy [Unknown]
  - Hypoacusis [Unknown]
  - White blood cell count [Unknown]
